FAERS Safety Report 8932834 (Version 3)
Quarter: 2013Q1

REPORT INFORMATION
  Report Type: Spontaneous
  Country: JP (occurrence: JP)
  Receive Date: 20121128
  Receipt Date: 20130102
  Transmission Date: 20140127
  Serious: Yes (Other)
  Sender: FDA-Public Use
  Company Number: JP-OTSUKA-JP-2012-16902

PATIENT
  Age: 90 Year
  Sex: Female
  Weight: 44 kg

DRUGS (18)
  1. SAMSCA [Suspect]
     Indication: CARDIAC FAILURE CONGESTIVE
     Dosage: 7.5 MG MILLIGRAM(S), QD
     Route: 048
     Dates: start: 20121102, end: 20121106
  2. SAMSCA [Suspect]
     Dosage: 15 MG MILLIGRAM(S), QD
     Route: 051
     Dates: start: 20121107, end: 20121110
  3. PICILLIBACTA [Suspect]
     Indication: PNEUMONIA
     Dosage: 3 G GRAM(S), BID
     Route: 041
     Dates: start: 20121105, end: 20121107
  4. FUROSEMIDE [Concomitant]
     Indication: CARDIAC FAILURE CONGESTIVE
     Dosage: 20 MG MILLIGRAM(S), QD
     Route: 042
     Dates: start: 20121018, end: 20121104
  5. FUROSEMIDE [Concomitant]
     Dosage: 40 MG MILLIGRAM(S), DAILY DOSE
     Route: 042
     Dates: start: 20121105, end: 20121107
  6. FUROSEMIDE [Concomitant]
     Indication: CARDIAC FAILURE CHRONIC
     Dosage: 40 MG MILLIGRAM(S), QD
     Route: 048
     Dates: end: 20121105
  7. FUROSEMIDE [Concomitant]
     Dosage: 40 MG MILLIGRAM(S), QD
     Route: 051
     Dates: start: 20121106
  8. ALDACTONE A [Concomitant]
     Indication: CARDIAC FAILURE CHRONIC
     Dosage: 50 MG MILLIGRAM(S), QD
     Route: 048
     Dates: end: 20121105
  9. ALDACTONE A [Concomitant]
     Dosage: 50 MG MILLIGRAM(S), QD
     Route: 051
     Dates: start: 20121106
  10. DIOVAN [Concomitant]
     Indication: CARDIAC FAILURE CHRONIC
     Dosage: 20 MG MILLIGRAM(S), QD
     Route: 048
     Dates: end: 20121105
  11. DIOVAN [Concomitant]
     Dosage: 20 MG MILLIGRAM(S), QD
     Route: 051
     Dates: start: 20121106
  12. BAYASPIRIN [Concomitant]
     Indication: PROPHYLAXIS
     Dosage: 100 MG MILLIGRAM(S), QD
     Route: 048
     Dates: end: 20121105
  13. BAYASPIRIN [Concomitant]
     Dosage: 100 MG MILLIGRAM(S), QD
     Route: 051
     Dates: start: 20121106
  14. FEROTYM [Concomitant]
     Indication: IRON DEFICIENCY ANAEMIA
     Dosage: 50 MG MILLIGRAM(S), QD
     Route: 048
     Dates: end: 20121105
  15. FEROTYM [Concomitant]
     Dosage: 50 MG MILLIGRAM(S), QD
     Route: 051
     Dates: start: 20121106
  16. HALFDIGOXIN [Concomitant]
     Indication: ATRIAL FIBRILLATION
     Dosage: 0.125 MG MILLIGRAM(S), QOD
     Route: 048
     Dates: start: 20111227, end: 20121107
  17. HALFDIGOXIN [Concomitant]
     Indication: HEART RATE IRREGULAR
  18. BFLUID [Concomitant]
     Dosage: 500 ML MILLILITRE(S), QD
     Route: 041
     Dates: start: 20121106, end: 20121116

REACTIONS (6)
  - Aspartate aminotransferase increased [Unknown]
  - Alanine aminotransferase increased [Unknown]
  - Pneumonia [Unknown]
  - Cardiac failure [Unknown]
  - Hypernatraemia [Recovered/Resolved]
  - Blood urea increased [Unknown]
